FAERS Safety Report 14095947 (Version 1)
Quarter: 2017Q4

REPORT INFORMATION
  Report Type: Spontaneous
  Country: None (occurrence: US)
  Receive Date: 20171016
  Receipt Date: 20171016
  Transmission Date: 20180321
  Serious: Yes (Death)
  Sender: FDA-Public Use
  Company Number: US-MAYNE PHARMA-2017MYN001824

PATIENT

DRUGS (7)
  1. CLOZAPINE. [Suspect]
     Active Substance: CLOZAPINE
     Indication: PRODUCT USED FOR UNKNOWN INDICATION
     Dosage: UNK
     Dates: start: 199704, end: 20140219
  2. SIMVASTATIN. [Concomitant]
     Active Substance: SIMVASTATIN
  3. OLANZAPINE. [Concomitant]
     Active Substance: OLANZAPINE
  4. CHLORDIAZEPOXIDE. [Concomitant]
     Active Substance: CHLORDIAZEPOXIDE
  5. METFORMIN [Concomitant]
     Active Substance: METFORMIN HYDROCHLORIDE
  6. AMANTADINE. [Concomitant]
     Active Substance: AMANTADINE HYDROCHLORIDE
  7. FLUOXETINE [Concomitant]
     Active Substance: FLUOXETINE HYDROCHLORIDE

REACTIONS (3)
  - Lung neoplasm malignant [Fatal]
  - Pulmonary hilum mass [Fatal]
  - Lymphadenopathy mediastinal [Fatal]

NARRATIVE: CASE EVENT DATE: 20131203
